FAERS Safety Report 13908309 (Version 1)
Quarter: 2017Q3

REPORT INFORMATION
  Report Type: Spontaneous
  Country: GB (occurrence: GB)
  Receive Date: 20170826
  Receipt Date: 20170826
  Transmission Date: 20171127
  Serious: Yes (Disabling, Congenital Anomaly)
  Sender: FDA-Public Use
  Company Number: GB-TORRENT-00015538

PATIENT
  Sex: Female

DRUGS (5)
  1. DIHYDROCODEINE [Suspect]
     Active Substance: DIHYDROCODEINE
  2. QUETIAPINE. [Suspect]
     Active Substance: QUETIAPINE
  3. GABAPENTIN. [Suspect]
     Active Substance: GABAPENTIN
  4. CITALOPRAM [Suspect]
     Active Substance: CITALOPRAM HYDROBROMIDE
  5. OMEPRAZOLE. [Suspect]
     Active Substance: OMEPRAZOLE

REACTIONS (2)
  - Congenital thrombocytopenia [Recovering/Resolving]
  - Foetal exposure during pregnancy [Unknown]
